FAERS Safety Report 14482544 (Version 2)
Quarter: 2018Q1

REPORT INFORMATION
  Report Type: Report from Study
  Country: None (occurrence: TR)
  Receive Date: 20180202
  Receipt Date: 20180305
  Transmission Date: 20180509
  Serious: Yes (Hospitalization)
  Sender: FDA-Public Use
  Company Number: TR-ABBVIE-18K-161-2240356-00

PATIENT
  Age: 70 Year
  Sex: Male
  Weight: 80 kg

DRUGS (5)
  1. MADOPAR [Concomitant]
     Active Substance: BENSERAZIDE HYDROCHLORIDE\LEVODOPA
     Indication: PARKINSON^S DISEASE
     Route: 048
     Dates: start: 20180121
  2. AZILECT [Concomitant]
     Active Substance: RASAGILINE MESYLATE
     Indication: PARKINSON^S DISEASE
     Route: 048
     Dates: start: 20180121
  3. PK-MERZ [Concomitant]
     Active Substance: AMANTADINE
     Indication: PARKINSON^S DISEASE
     Route: 048
     Dates: start: 20180121
  4. PARKYN [Concomitant]
     Indication: PARKINSON^S DISEASE
     Route: 048
     Dates: start: 20180121
  5. DUODOPA [Suspect]
     Active Substance: CARBIDOPA\LEVODOPA
     Indication: PARKINSON^S DISEASE
     Dosage: MORNING DOSE: 5.50 ML??CONTINUOUS DOSE: 5.20 ML??EXTRA DOSE: 2.00 ML
     Route: 050
     Dates: start: 20170516, end: 20180121

REACTIONS (7)
  - Hypophagia [Unknown]
  - Pulmonary embolism [Recovering/Resolving]
  - Cardiac arrest [Recovered/Resolved]
  - Decubitus ulcer [Recovering/Resolving]
  - Pallor [Unknown]
  - Asthenia [Unknown]
  - Syncope [Unknown]

NARRATIVE: CASE EVENT DATE: 20180121
